FAERS Safety Report 14020181 (Version 4)
Quarter: 2018Q4

REPORT INFORMATION
  Report Type: Spontaneous
  Country: FR (occurrence: FR)
  Receive Date: 20170928
  Receipt Date: 20181019
  Transmission Date: 20190204
  Serious: Yes (Other)
  Sender: FDA-Public Use
  Company Number: FR-JNJFOC-20170921905

PATIENT
  Age: 65 Year
  Sex: Female

DRUGS (5)
  1. CAELYX [Suspect]
     Active Substance: DOXORUBICIN HYDROCHLORIDE
     Indication: OVARIAN CANCER RECURRENT
     Route: 042
     Dates: start: 201405, end: 201407
  2. NEUPOGEN [Concomitant]
     Active Substance: FILGRASTIM
     Route: 065
     Dates: start: 201406
  3. YONDELIS [Suspect]
     Active Substance: TRABECTEDIN
     Indication: OVARIAN CANCER RECURRENT
     Dosage: CYCLE 1- 4
     Route: 042
     Dates: start: 201405, end: 201407
  4. YONDELIS [Suspect]
     Active Substance: TRABECTEDIN
     Indication: OVARIAN CANCER RECURRENT
     Dosage: 4 CYCLES
     Route: 042
     Dates: start: 201411, end: 201502
  5. CAELYX [Suspect]
     Active Substance: DOXORUBICIN HYDROCHLORIDE
     Indication: OVARIAN CANCER RECURRENT
     Route: 042
     Dates: start: 201411, end: 201502

REACTIONS (7)
  - Neutropenia [Unknown]
  - Asthenia [Unknown]
  - Asthenia [Unknown]
  - Nausea [Unknown]
  - Neutropenia [Unknown]
  - Interstitial lung disease [Unknown]
  - Nausea [Unknown]

NARRATIVE: CASE EVENT DATE: 201405
